FAERS Safety Report 16785418 (Version 1)
Quarter: 2019Q3

REPORT INFORMATION
  Report Type: Spontaneous
  Country: US (occurrence: US)
  Receive Date: 20190909
  Receipt Date: 20190909
  Transmission Date: 20191005
  Serious: No
  Sender: FDA-Public Use
  Company Number: US-MYLANLABS-2019M1080428

PATIENT
  Sex: Male
  Weight: 88 kg

DRUGS (1)
  1. FENTANYL TRANSDERMAL SYSTEM [Suspect]
     Active Substance: FENTANYL
     Indication: PAIN
     Dosage: THREE DAYS
     Route: 062
     Dates: start: 20160801

REACTIONS (1)
  - Drug ineffective [Not Recovered/Not Resolved]
